FAERS Safety Report 5592607-3 (Version None)
Quarter: 2008Q1

REPORT INFORMATION
  Report Type: 
  Country: None (occurrence: None)
  Receive Date: 20080114
  Receipt Date: 20080108
  Transmission Date: 20080703
  Serious: Yes (Other)
  Sender: FDA-Public Use
  Company Number: 2008EN000002

PATIENT
  Sex: Female

DRUGS (1)
  1. ONCASPAR [Suspect]
     Indication: DRUG USE FOR UNKNOWN INDICATION

REACTIONS (2)
  - BLOOD TRIGLYCERIDES INCREASED [None]
  - HYPERLIPIDAEMIA [None]
